FAERS Safety Report 24979099 (Version 1)
Quarter: 2025Q1

REPORT INFORMATION
  Report Type: Spontaneous
  Country: US (occurrence: US)
  Receive Date: 20250218
  Receipt Date: 20250218
  Transmission Date: 20250409
  Serious: Yes (Hospitalization, Other)
  Sender: MERCK SHARP & DOHME LLC
  Company Number: US-PFIZERINC-GRACE01369001

PATIENT
  Age: 75 Year
  Sex: Male

DRUGS (1)
  1. PEMBROLIZUMAB [Suspect]
     Active Substance: PEMBROLIZUMAB
     Indication: Lung carcinoma cell type unspecified stage 0

REACTIONS (13)
  - Myocardial infarction [Unknown]
  - Cold sweat [Unknown]
  - Influenza [Unknown]
  - Feeling hot [Unknown]
  - Taste disorder [Unknown]
  - Eating disorder [Unknown]
  - Gastrointestinal inflammation [Unknown]
  - Thrombosis [Unknown]
  - Weight decreased [Unknown]
  - Thirst [Unknown]
  - Cancer pain [Unknown]
  - Asthenia [Unknown]
  - Walking aid user [Unknown]

NARRATIVE: CASE EVENT DATE: 20250101
